FAERS Safety Report 9022783 (Version 1)
Quarter: 2013Q1

REPORT INFORMATION
  Report Type: Spontaneous
  Country: US (occurrence: US)
  Receive Date: 20130120
  Receipt Date: 20130120
  Transmission Date: 20140127
  Serious: No
  Sender: FDA-Public Use
  Company Number: US-ALLERGAN-1217594US

PATIENT
  Sex: Female

DRUGS (3)
  1. BOTOX? [Suspect]
     Indication: SKIN WRINKLING
  2. BOTOX? [Suspect]
     Indication: SKIN WRINKLING
  3. JUVEDERM [Concomitant]

REACTIONS (5)
  - Ecchymosis [Unknown]
  - Erythema [Unknown]
  - Blister [Unknown]
  - Skin discolouration [Unknown]
  - Pruritus [Unknown]
